FAERS Safety Report 18286778 (Version 2)
Quarter: 2021Q3

REPORT INFORMATION
  Report Type: Spontaneous
  Country: US (occurrence: US)
  Receive Date: 20200921
  Receipt Date: 20210830
  Transmission Date: 20211014
  Serious: Yes (Death, Hospitalization, Disabling, Other)
  Sender: FDA-Public Use
  Company Number: US-SA-2020SA253008

PATIENT
  Age: 4 Month

DRUGS (2)
  1. RANITIDINE HYDROCHLORIDE. [Suspect]
     Active Substance: RANITIDINE HYDROCHLORIDE
     Dosage: UNK
  2. ZANTAC [Suspect]
     Active Substance: RANITIDINE HYDROCHLORIDE
     Dosage: UNK
     Dates: start: 199801, end: 201906

REACTIONS (10)
  - Pain [Unknown]
  - Colon cancer [Fatal]
  - Colorectal cancer [Fatal]
  - Deformity [Unknown]
  - Bladder cancer [Fatal]
  - Disability [Unknown]
  - Anxiety [Unknown]
  - Gastrointestinal carcinoma [Fatal]
  - Hospitalisation [Unknown]
  - Anhedonia [Unknown]

NARRATIVE: CASE EVENT DATE: 20190301
